FAERS Safety Report 26024558 (Version 1)
Quarter: 2025Q4

REPORT INFORMATION
  Report Type: Spontaneous
  Country: CN (occurrence: CN)
  Receive Date: 20251111
  Receipt Date: 20251111
  Transmission Date: 20260118
  Serious: Yes (Hospitalization)
  Sender: ACCORD
  Company Number: None

PATIENT
  Age: 40 Year
  Sex: Male
  Weight: 58 kg

DRUGS (4)
  1. TRASTUZUMAB [Suspect]
     Active Substance: TRASTUZUMAB
     Indication: Product used for unknown indication
     Dosage: 350 MILLIGRAM, QD, STRENGTH: 150 MG
     Route: 042
     Dates: start: 20250927, end: 20250927
  2. PERTUZUMAB\TRASTUZUMAB [Suspect]
     Active Substance: PERTUZUMAB\TRASTUZUMAB
     Indication: Product used for unknown indication
     Dosage: 420 MILLIGRAM, QD
     Route: 058
     Dates: start: 20250927, end: 20250927
  3. DOCETAXEL [Suspect]
     Active Substance: DOCETAXEL
     Indication: Product used for unknown indication
     Dosage: 120 MILLIGRAM, QD, IV DRIP
     Route: 042
     Dates: start: 20250927, end: 20250927
  4. CARBOPLATIN [Suspect]
     Active Substance: CARBOPLATIN
     Indication: Breast cancer
     Dosage: 600 MILLIGRAM, QD, IV DRIP
     Route: 042
     Dates: start: 20250927, end: 20250927

REACTIONS (2)
  - Alanine aminotransferase increased [Recovering/Resolving]
  - Aspartate aminotransferase increased [Recovering/Resolving]

NARRATIVE: CASE EVENT DATE: 20251017
